FAERS Safety Report 5473810-X (Version None)
Quarter: 2007Q4

REPORT INFORMATION
  Report Type: 
  Country: None (occurrence: None)
  Receive Date: 20071001
  Receipt Date: 20040617
  Transmission Date: 20080405
  Serious: Yes (Other)
  Sender: FDA-Public Use
  Company Number: US-PFIZER INC-2007064185

PATIENT
  Age: 54 Year
  Sex: Female

DRUGS (1)
  1. DEPO-MEDROL [Suspect]

REACTIONS (1)
  - POSTMENOPAUSAL HAEMORRHAGE [None]
